FAERS Safety Report 8247766-0 (Version None)
Quarter: 2012Q1

REPORT INFORMATION
  Report Type: 
  Country: None (occurrence: None)
  Receive Date: 20120330
  Receipt Date: 20120320
  Transmission Date: 20120608
  Serious: Yes (Hospitalization)
  Sender: FDA-Public Use
  Company Number: PHHY2012DK024499

PATIENT
  Sex: Female

DRUGS (4)
  1. VITAMIN D [Concomitant]
     Indication: OSTEOPOROSIS
     Route: 048
  2. CALCIUM CARBONATE [Concomitant]
     Indication: OSTEOPOROSIS
     Route: 048
  3. ALENDRONATE SODIUM [Suspect]
     Indication: OSTEOPOROSIS
     Route: 048
     Dates: start: 20070101, end: 20070101
  4. PREDNISOLONE [Concomitant]
     Indication: ASTHMA
     Dosage: 25 MG, QD
     Route: 048
     Dates: start: 20030501

REACTIONS (6)
  - MULTI-ORGAN FAILURE [None]
  - MYALGIA [None]
  - DYSPHAGIA [None]
  - LUNG DISORDER [None]
  - SEPSIS [None]
  - BONE DENSITY DECREASED [None]
